FAERS Safety Report 9086976 (Version 1)
Quarter: 2013Q1

REPORT INFORMATION
  Report Type: Report from Study
  Country: US (occurrence: US)
  Receive Date: 20130201
  Receipt Date: 20130201
  Transmission Date: 20140127
  Serious: No
  Sender: FDA-Public Use
  Company Number: US-ABBOTT-12P-163-1029331-00

PATIENT
  Age: 62 Year
  Sex: Male

DRUGS (12)
  1. HUMIRA [Suspect]
     Indication: RHEUMATOID ARTHRITIS
     Route: 058
     Dates: start: 20121025
  2. ACTOS [Concomitant]
     Indication: DIABETES MELLITUS
  3. METFORMIN [Concomitant]
     Indication: DIABETES MELLITUS
  4. QUINIPRIL [Concomitant]
     Indication: HYPERTENSION
  5. CELEBREX [Concomitant]
     Indication: OSTEOARTHRITIS
  6. VYTORIN [Concomitant]
     Indication: BLOOD CHOLESTEROL
     Dosage: 10/40MG, 1 AT NIGHT
  7. ASPIRIN [Concomitant]
     Indication: ANTICOAGULANT THERAPY
  8. CINNAMON [Concomitant]
     Indication: DIABETES MELLITUS
  9. CRANBERRY EXTRACT [Concomitant]
     Indication: PROPHYLAXIS
  10. CRANBERRY EXTRACT [Concomitant]
     Indication: URINARY TRACT DISORDER
  11. CENTRUM [Concomitant]
     Indication: PRODUCT USED FOR UNKNOWN INDICATION
     Dosage: DAILY
  12. ZINC [Concomitant]
     Indication: PRODUCT USED FOR UNKNOWN INDICATION

REACTIONS (1)
  - Injection site bruising [Not Recovered/Not Resolved]
